FAERS Safety Report 23765233 (Version 1)
Quarter: 2024Q2

REPORT INFORMATION
  Report Type: Spontaneous
  Country: US (occurrence: US)
  Receive Date: 20240420
  Receipt Date: 20240420
  Transmission Date: 20240716
  Serious: Yes (Hospitalization, Other)
  Sender: FDA-Public Use
  Company Number: US-AUROBINDO-AUR-APL-2024-017605

PATIENT
  Age: 59 Year
  Sex: Male

DRUGS (2)
  1. CLOZAPINE [Suspect]
     Active Substance: CLOZAPINE
     Indication: Product used for unknown indication
     Dosage: 100 MILLIGRAM IN AM
     Route: 048
  2. CLOZAPINE [Suspect]
     Active Substance: CLOZAPINE
     Dosage: 300 MILLIGRAM AT HS
     Route: 048

REACTIONS (4)
  - Constipation [Unknown]
  - Ileus [Unknown]
  - Hospitalisation [Unknown]
  - Colonoscopy [Unknown]

NARRATIVE: CASE EVENT DATE: 20240402
